FAERS Safety Report 4985803-7 (Version None)
Quarter: 2006Q2

REPORT INFORMATION
  Report Type: 
  Country: None (occurrence: None)
  Receive Date: 20060428
  Receipt Date: 20051116
  Transmission Date: 20061013
  Serious: No
  Sender: FDA-Public Use
  Company Number: US-GLAXOSMITHKLINE-A0582562A

PATIENT
  Sex: Female

DRUGS (7)
  1. AMERGE [Suspect]
     Indication: MIGRAINE
     Dosage: 2.5MG PER DAY
     Route: 048
     Dates: start: 20050718
  2. INDERAL [Concomitant]
  3. VALTREX [Concomitant]
  4. XANAX [Concomitant]
  5. MOTRIN [Concomitant]
  6. ULTRAM [Concomitant]
  7. IMITREX [Concomitant]

REACTIONS (2)
  - EYE SWELLING [None]
  - URTICARIA [None]
